FAERS Safety Report 20977480 (Version 3)
Quarter: 2022Q4

REPORT INFORMATION
  Report Type: Spontaneous
  Country: JP (occurrence: JP)
  Receive Date: 20220618
  Receipt Date: 20221114
  Transmission Date: 20230112
  Serious: Yes (Hospitalization)
  Sender: FDA-Public Use
  Company Number: JP-TAKEDA-2022TJP056693

PATIENT
  Age: 8 Decade
  Sex: Male

DRUGS (2)
  1. NIVOLUMAB [Suspect]
     Active Substance: NIVOLUMAB
     Indication: Renal cancer metastatic
     Route: 065
     Dates: start: 20220427
  2. CABOMETYX [Suspect]
     Active Substance: CABOZANTINIB S-MALATE
     Indication: Renal cancer metastatic
     Dosage: 40 MG, QD
     Route: 048
     Dates: start: 20220427, end: 20220607

REACTIONS (3)
  - Stomatitis [Recovered/Resolved]
  - Decreased appetite [Recovering/Resolving]
  - Taste disorder [Recovering/Resolving]

NARRATIVE: CASE EVENT DATE: 20220607
